FAERS Safety Report 18270572 (Version 1)
Quarter: 2020Q3

REPORT INFORMATION
  Report Type: Report from Study
  Country: US (occurrence: US)
  Receive Date: 20200915
  Receipt Date: 20200915
  Transmission Date: 20201103
  Serious: Yes (Hospitalization)
  Sender: FDA-Public Use
  Company Number: US-JNJFOC-A-US2017-163397

PATIENT
  Age: 30 Year
  Sex: Female

DRUGS (15)
  1. BIOTIN [Concomitant]
     Active Substance: BIOTIN
  2. LASIX [Concomitant]
     Active Substance: FUROSEMIDE
  3. PREDNISONE. [Concomitant]
     Active Substance: PREDNISONE
  4. MYFORTIC [Concomitant]
     Active Substance: MYCOPHENOLATE SODIUM
  5. PRILOSEC [Concomitant]
     Active Substance: OMEPRAZOLE MAGNESIUM
  6. WELLBUTRIN [Concomitant]
     Active Substance: BUPROPION HYDROCHLORIDE
  7. LEXAPRO [Concomitant]
     Active Substance: ESCITALOPRAM OXALATE
  8. NIFEDIPINE. [Concomitant]
     Active Substance: NIFEDIPINE
  9. OPSUMIT [Suspect]
     Active Substance: MACITENTAN
     Indication: PULMONARY ARTERIAL HYPERTENSION
     Dosage: 10 MG, QD
     Route: 048
     Dates: start: 20191123
  10. OPSUMIT [Suspect]
     Active Substance: MACITENTAN
     Dosage: 10 MG, QD
     Route: 048
     Dates: start: 201709
  11. MULTIVITAMIN [Concomitant]
     Active Substance: VITAMINS
  12. OPSUMIT [Suspect]
     Active Substance: MACITENTAN
     Dosage: 5 MG, QD
     Route: 048
     Dates: start: 20171017
  13. POTASSIUM [Concomitant]
     Active Substance: POTASSIUM
  14. MOXIFLOXACIN. [Concomitant]
     Active Substance: MOXIFLOXACIN
  15. MAGNESIUM [Concomitant]
     Active Substance: MAGNESIUM

REACTIONS (9)
  - Incorrect dose administered [Unknown]
  - Dyspnoea exertional [Not Recovered/Not Resolved]
  - Hospitalisation [Unknown]
  - Abdominal pain upper [Unknown]
  - Dyspnoea [Not Recovered/Not Resolved]
  - Nasopharyngitis [Recovering/Resolving]
  - Cough [Not Recovered/Not Resolved]
  - Influenza [Recovered/Resolved]
  - Pneumonia [Not Recovered/Not Resolved]

NARRATIVE: CASE EVENT DATE: 20171226
